FAERS Safety Report 7671607-3 (Version None)
Quarter: 2011Q3

REPORT INFORMATION
  Report Type: 
  Country: None (occurrence: None)
  Receive Date: 20110809
  Receipt Date: 20110803
  Transmission Date: 20111222
  Serious: Yes (Hospitalization, Other)
  Sender: FDA-Public Use
  Company Number: ES-PFIZER INC-2011177943

PATIENT
  Age: 76 Year
  Sex: Female

DRUGS (5)
  1. BEMIPARIN [Suspect]
     Indication: PROPHYLAXIS
     Dosage: UNK
     Route: 065
     Dates: start: 20110105, end: 20110124
  2. ACETYLSALICYLIC ACID [Concomitant]
     Indication: PROPHYLAXIS
     Dosage: UNK
     Dates: start: 20091019, end: 20110112
  3. LINEZOLID [Concomitant]
     Indication: PNEUMONIA
     Dosage: UNK
     Dates: start: 20110109, end: 20110119
  4. RAPAMUNE [Suspect]
     Indication: RENAL TRANSPLANT
     Dosage: 1 MG, 1X/DAY
     Route: 048
     Dates: start: 20101202, end: 20110124
  5. TACROLIMUS [Suspect]
     Indication: RENAL TRANSPLANT
     Dosage: 0.5 MG, 1X/DAY
     Route: 048
     Dates: start: 20101104, end: 20110124

REACTIONS (4)
  - CARDIAC FAILURE CONGESTIVE [None]
  - COMPLICATIONS OF TRANSPLANTED KIDNEY [None]
  - PANCYTOPENIA [None]
  - ENTEROBACTER PNEUMONIA [None]
